FAERS Safety Report 5509668-X (Version None)
Quarter: 2007Q4

REPORT INFORMATION
  Report Type: 
  Country: None (occurrence: None)
  Receive Date: 20071107
  Receipt Date: 20071107
  Transmission Date: 20080405
  Serious: Yes (Hospitalization)
  Sender: FDA-Public Use
  Company Number: None

PATIENT
  Age: 64 Year
  Sex: Male

DRUGS (3)
  1. CLONIDINE [Suspect]
     Indication: BENIGN PROSTATIC HYPERPLASIA
     Dosage: 0.3MG QWEEK TOP
     Route: 061
     Dates: start: 20070207, end: 20070712
  2. CLONIDINE [Suspect]
     Indication: HYPERTENSION
     Dosage: 0.3MG QWEEK TOP
     Route: 061
     Dates: start: 20070207, end: 20070712
  3. TERAZOSIN HCL [Suspect]
     Dosage: 2MG EVERY DAY PO
     Route: 048
     Dates: start: 20060126

REACTIONS (3)
  - DIZZINESS [None]
  - HEADACHE [None]
  - SYNCOPE [None]
